FAERS Safety Report 9607501 (Version 1)
Quarter: 2013Q4

REPORT INFORMATION
  Report Type: Spontaneous
  Country: BR (occurrence: None)
  Receive Date: 20131004
  Receipt Date: 20131004
  Transmission Date: 20140711
  Serious: Yes (Other)
  Sender: FDA-Public Use
  Company Number: VAL_02759_2013

PATIENT
  Age: 51 Year
  Sex: Male
  Weight: 99 kg

DRUGS (4)
  1. LOPRESSOR [Suspect]
     Indication: HYPERTENSION
  2. NICOTINE [Suspect]
     Indication: PRODUCT USED FOR UNKNOWN INDICATION
     Dosage: DF
  3. BUPROPION [Suspect]
     Indication: PRODUCT USED FOR UNKNOWN INDICATION
  4. FENOTEROL W/IPRATROPIUM [Suspect]
     Dosage: INHALATION AS NEEDED
     Route: 055

REACTIONS (3)
  - Chronic obstructive pulmonary disease [None]
  - Cor pulmonale acute [None]
  - Cor pulmonale [None]
